FAERS Safety Report 7093555-2 (Version None)
Quarter: 2010Q4

REPORT INFORMATION
  Report Type: 
  Country: None (occurrence: None)
  Receive Date: 20101102
  Receipt Date: 20101021
  Transmission Date: 20110411
  Serious: Yes (Hospitalization)
  Sender: FDA-Public Use
  Company Number: US-000172

PATIENT
  Age: 15 Year
  Sex: Female

DRUGS (4)
  1. TRAZODONE [Suspect]
  2. QUETIAPINE [Suspect]
  3. CLONIDINE [Suspect]
  4. RISPERIDONE [Suspect]

REACTIONS (12)
  - ANTICHOLINERGIC SYNDROME [None]
  - DELIRIUM [None]
  - DEPRESSED LEVEL OF CONSCIOUSNESS [None]
  - DRUG ABUSE [None]
  - ELECTROCARDIOGRAM QT PROLONGED [None]
  - HYPOTENSION [None]
  - INCOHERENT [None]
  - LETHARGY [None]
  - MULTIPLE DRUG OVERDOSE [None]
  - SOMNOLENCE [None]
  - TACHYCARDIA [None]
  - UNRESPONSIVE TO STIMULI [None]
